FAERS Safety Report 15186995 (Version 2)
Quarter: 2019Q1

REPORT INFORMATION
  Report Type: Report from Study
  Country: US (occurrence: US)
  Receive Date: 20180723
  Receipt Date: 20190130
  Transmission Date: 20190417
  Serious: No
  Sender: FDA-Public Use
  Company Number: US-EXELIXIS-CABO-18012476

PATIENT
  Sex: Male

DRUGS (9)
  1. CABOMETYX [Suspect]
     Active Substance: CABOZANTINIB S-MALATE
     Indication: RENAL CANCER
     Dosage: 60 MG, QD
     Route: 048
     Dates: start: 20161217
  2. ALPRAZOLAM. [Concomitant]
     Active Substance: ALPRAZOLAM
  3. INDOMETHACIN. [Concomitant]
     Active Substance: INDOMETHACIN
  4. ELIQUIS [Concomitant]
     Active Substance: APIXABAN
  5. MAGNESIUM [Concomitant]
     Active Substance: MAGNESIUM
  6. ALLOPURINOL. [Concomitant]
     Active Substance: ALLOPURINOL
  7. SELENIUM [Concomitant]
     Active Substance: SELENIUM
  8. MULTIVITAMIN [Concomitant]
     Active Substance: VITAMINS
  9. METHYLPREDNISOLONE. [Concomitant]
     Active Substance: METHYLPREDNISOLONE

REACTIONS (2)
  - Otitis media acute [Unknown]
  - Vertigo [Unknown]
